FAERS Safety Report 5603233-1 (Version None)
Quarter: 2008Q1

REPORT INFORMATION
  Report Type: 
  Country: None (occurrence: None)
  Receive Date: 20080125
  Receipt Date: 20080115
  Transmission Date: 20080703
  Serious: Yes (Other)
  Sender: FDA-Public Use
  Company Number: US-PFIZER INC-2008004590

PATIENT
  Sex: Female
  Weight: 68 kg

DRUGS (4)
  1. SERTRALINE [Suspect]
     Indication: DEPRESSION
     Dates: start: 20080105, end: 20080108
  2. LORAZEPAM [Concomitant]
  3. NEXIUM [Concomitant]
     Indication: GASTROOESOPHAGEAL REFLUX DISEASE
  4. ALLEGRA [Concomitant]
     Indication: HYPERSENSITIVITY

REACTIONS (4)
  - APHASIA [None]
  - DYSARTHRIA [None]
  - MIGRAINE [None]
  - SPEECH DISORDER [None]
